FAERS Safety Report 6198052-4 (Version None)
Quarter: 2009Q2

REPORT INFORMATION
  Report Type: 
  Country: None (occurrence: None)
  Receive Date: 20090512
  Receipt Date: 20090202
  Transmission Date: 20091009
  Serious: Yes (Other)
  Sender: FDA-Public Use
  Company Number: 56480

PATIENT
  Sex: Female

DRUGS (1)
  1. THIOTEPA [Suspect]
     Dosage: 507MG DAILY FOR 3 DAYS
     Dates: start: 20090124, end: 20090126

REACTIONS (1)
  - CONFUSIONAL STATE [None]
